FAERS Safety Report 5418715-5 (Version None)
Quarter: 2007Q3

REPORT INFORMATION
  Report Type: 
  Country: None (occurrence: None)
  Receive Date: 20070817
  Receipt Date: 20070810
  Transmission Date: 20080115
  Serious: Yes (Hospitalization, Disabling, Other)
  Sender: FDA-Public Use
  Company Number: US-MERCK-0707USA03120

PATIENT
  Age: 44 Year
  Sex: Female
  Weight: 63 kg

DRUGS (3)
  1. ZOCOR [Suspect]
     Indication: HYPERLIPIDAEMIA
     Route: 048
  2. VYTORIN [Suspect]
     Indication: HYPERLIPIDAEMIA
     Route: 048
     Dates: start: 20070601, end: 20070701
  3. NIACIN [Concomitant]
     Route: 065

REACTIONS (5)
  - FUNGAL CYSTITIS [None]
  - FUNGAL INFECTION [None]
  - HYPOKALAEMIA [None]
  - HYPOMAGNESAEMIA [None]
  - RHABDOMYOLYSIS [None]
